FAERS Safety Report 5406127-X (Version None)
Quarter: 2007Q3

REPORT INFORMATION
  Report Type: 
  Country: None (occurrence: None)
  Receive Date: 20070802
  Receipt Date: 20070802
  Transmission Date: 20080115
  Serious: Yes (Other)
  Sender: FDA-Public Use
  Company Number: None

PATIENT
  Sex: Female
  Weight: 97.0698 kg

DRUGS (1)
  1. EFFEXOR [Suspect]
     Indication: FIBROMYALGIA
     Dosage: 150 MG DAILY PO
     Route: 048

REACTIONS (14)
  - ANGER [None]
  - CRYING [None]
  - DIZZINESS [None]
  - DRUG DOSE OMISSION [None]
  - DRUG WITHDRAWAL SYNDROME [None]
  - EYE MOVEMENT DISORDER [None]
  - MALAISE [None]
  - MOOD SWINGS [None]
  - MOTION SICKNESS [None]
  - NAUSEA [None]
  - NERVOUSNESS [None]
  - SUICIDAL IDEATION [None]
  - THINKING ABNORMAL [None]
  - THREAT OF REDUNDANCY [None]
